FAERS Safety Report 5596543-8 (Version None)
Quarter: 2008Q1

REPORT INFORMATION
  Report Type: 
  Country: None (occurrence: None)
  Receive Date: 20080118
  Receipt Date: 20080108
  Transmission Date: 20080703
  Serious: Yes (Other)
  Sender: FDA-Public Use
  Company Number: CA-PFIZER INC-2008002519

PATIENT
  Sex: Male

DRUGS (6)
  1. DILANTIN [Suspect]
     Route: 048
  2. AVANDIA [Concomitant]
     Route: 048
  3. ACCUPRIL [Concomitant]
     Route: 048
  4. PAXIL [Concomitant]
     Route: 048
  5. METFORMIN HCL [Concomitant]
     Route: 048
  6. MERIDIA [Concomitant]
     Route: 048

REACTIONS (1)
  - CONVULSION [None]
